FAERS Safety Report 24722775 (Version 3)
Quarter: 2025Q1

REPORT INFORMATION
  Report Type: Spontaneous
  Country: JP (occurrence: JP)
  Receive Date: 20241211
  Receipt Date: 20250112
  Transmission Date: 20250409
  Serious: Yes (Other)
  Sender: JOHNSON AND JOHNSON
  Company Number: JP-NShinyaku-EVA20240848801001307081

PATIENT
  Age: 60 Year
  Sex: Male
  Weight: 94.0 kg

DRUGS (3)
  1. SELEXIPAG [Suspect]
     Active Substance: SELEXIPAG
     Indication: Pulmonary arterial hypertension
     Route: 048
     Dates: start: 20240605
  2. OPSUMIT [Concomitant]
     Active Substance: MACITENTAN
     Indication: Pulmonary arterial hypertension
     Route: 048
     Dates: start: 20240628
  3. Catecholamine [Concomitant]
     Route: 065
     Dates: start: 201009

REACTIONS (6)
  - Fluid retention [Unknown]
  - Dialysis [Unknown]
  - Blood urea increased [Unknown]
  - Blood creatinine increased [Unknown]
  - Bacteraemia [Unknown]
  - Device related infection [Unknown]

NARRATIVE: CASE EVENT DATE: 20240605
